FAERS Safety Report 6636479-4 (Version None)
Quarter: 2010Q1

REPORT INFORMATION
  Report Type: 
  Country: None (occurrence: None)
  Receive Date: 20100316
  Receipt Date: 20100303
  Transmission Date: 20100710
  Serious: Yes (Hospitalization, Other)
  Sender: FDA-Public Use
  Company Number: JP-PFIZER INC-2010025315

PATIENT
  Age: 62 Year
  Sex: Female

DRUGS (12)
  1. CELECOX [Suspect]
     Indication: SPINAL OSTEOARTHRITIS
     Dosage: 100 MG, 2X/DAY
     Route: 048
     Dates: start: 20091204
  2. SOLANTAL [Suspect]
     Indication: PHARYNGITIS
     Dosage: 100 MG, 3X/DAY
     Route: 048
     Dates: start: 20100215, end: 20100217
  3. MUCOSTA [Concomitant]
     Dosage: UNK
     Dates: start: 20091204
  4. MYONAL [Concomitant]
     Dosage: UNK
     Dates: start: 20091204
  5. NEUROTROPIN [Concomitant]
     Dosage: UNK
     Dates: start: 20091225
  6. PRORENAL [Concomitant]
     Dosage: UNK
     Dates: start: 20090713
  7. DASEN [Concomitant]
     Indication: UPPER RESPIRATORY TRACT INFECTION
     Dosage: UNK
     Dates: start: 20100215, end: 20100217
  8. FLAVERIC [Concomitant]
     Indication: UPPER RESPIRATORY TRACT INFECTION
     Dosage: UNK
     Dates: start: 20100215, end: 20100217
  9. CLARITIN [Concomitant]
     Indication: RHINITIS
     Dosage: UNK
     Dates: start: 20100215, end: 20100217
  10. CALONAL [Concomitant]
     Dosage: UNK
     Dates: start: 20100212, end: 20100217
  11. ANPLAG [Concomitant]
     Dosage: UNK
     Dates: start: 20090919
  12. METHYCOBAL [Concomitant]
     Dosage: UNK
     Dates: start: 20090713

REACTIONS (6)
  - BODY TEMPERATURE DECREASED [None]
  - CHILLS [None]
  - HYPERHIDROSIS [None]
  - MALAISE [None]
  - PALPITATIONS [None]
  - TREMOR [None]
